FAERS Safety Report 5049585-5 (Version None)
Quarter: 2006Q3

REPORT INFORMATION
  Report Type: 
  Country: None (occurrence: None)
  Receive Date: 20060712
  Receipt Date: 20060705
  Transmission Date: 20061208
  Serious: Yes (Other)
  Sender: FDA-Public Use
  Company Number: US-BRISTOL-MYERS SQUIBB COMPANY-13434097

PATIENT
  Age: 56 Year
  Sex: Female

DRUGS (3)
  1. ERBITUX [Suspect]
     Indication: SQUAMOUS CELL CARCINOMA
  2. CARBOPLATIN [Suspect]
     Indication: SQUAMOUS CELL CARCINOMA
     Dosage: INITIAL DOSE: 15MAY06
     Route: 042
     Dates: start: 20060626, end: 20060626
  3. RADIATION THERAPY [Suspect]
     Indication: SQUAMOUS CELL CARCINOMA
     Dosage: DOSAGE FORM = CGY  2100-2700 CGY WEEKS 6-8
     Dates: start: 20060630, end: 20060630

REACTIONS (2)
  - MUCOSAL INFLAMMATION [None]
  - RASH [None]
